FAERS Safety Report 4660862-X (Version None)
Quarter: 2005Q2

REPORT INFORMATION
  Report Type: 
  Country: None (occurrence: None)
  Receive Date: 20050427
  Receipt Date: 20050113
  Transmission Date: 20051028
  Serious: Yes (Other)
  Sender: FDA-Public Use
  Company Number: US-JNJFOC-20050100531

PATIENT
  Age: 35 Year
  Sex: Female
  Weight: 61.2356 kg

DRUGS (1)
  1. ULTRAM [Suspect]
     Indication: PAIN

REACTIONS (4)
  - ANXIETY [None]
  - CONVULSION [None]
  - INSOMNIA [None]
  - TREMOR [None]
